FAERS Safety Report 23593659 (Version 2)
Quarter: 2024Q2

REPORT INFORMATION
  Report Type: Report from Study
  Country: AR (occurrence: AR)
  Receive Date: 20240304
  Receipt Date: 20240410
  Transmission Date: 20240716
  Serious: Yes (Hospitalization, Other)
  Sender: FDA-Public Use
  Company Number: AR-ABBVIE-5663037

PATIENT
  Sex: Male

DRUGS (1)
  1. RINVOQ [Suspect]
     Active Substance: UPADACITINIB
     Indication: Psoriatic arthropathy
     Dosage: FORM STRENGTH: 15 MG
     Route: 048
     Dates: start: 20211116, end: 202401

REACTIONS (5)
  - Prostate cancer [Unknown]
  - Pyrexia [Unknown]
  - Metastases to bone [Unknown]
  - Blood urine [Unknown]
  - Spinal fracture [Unknown]

NARRATIVE: CASE EVENT DATE: 20240101
